FAERS Safety Report 5569625-4 (Version None)
Quarter: 2007Q4

REPORT INFORMATION
  Report Type: 
  Country: None (occurrence: None)
  Receive Date: 20071218
  Receipt Date: 20071204
  Transmission Date: 20080405
  Serious: Yes (Life-Threatening, Hospitalization)
  Sender: FDA-Public Use
  Company Number: 160847ISR

PATIENT
  Age: 52 Year
  Sex: Male

DRUGS (4)
  1. AMLODIPINE [Suspect]
     Dosage: 325 MG
  2. ATENOLOL [Suspect]
     Dosage: 2000 MG, 1 TOTAL
  3. ZOPICLONE [Suspect]
     Dosage: 37.5 MG, 1 TOTAL
  4. LOSARTAN POTASSIUM [Suspect]
     Dosage: 2000 MG, ORAL
     Route: 048

REACTIONS (3)
  - ATRIOVENTRICULAR BLOCK FIRST DEGREE [None]
  - HYPOTENSION [None]
  - OVERDOSE [None]
